FAERS Safety Report 15268811 (Version 1)
Quarter: 2018Q3

REPORT INFORMATION
  Report Type: Spontaneous
  Country: US (occurrence: US)
  Receive Date: 20180813
  Receipt Date: 20180813
  Transmission Date: 20181010
  Serious: Yes (Other)
  Sender: FDA-Public Use
  Company Number: US-ALEXION-A201810140

PATIENT
  Sex: Female

DRUGS (1)
  1. SOLIRIS [Suspect]
     Active Substance: ECULIZUMAB
     Indication: MYASTHENIA GRAVIS
     Dosage: UNK
     Route: 065

REACTIONS (10)
  - Headache [Unknown]
  - Vena cava embolism [Unknown]
  - Muscle disorder [Unknown]
  - Stress [Unknown]
  - Fall [Unknown]
  - Injury [Unknown]
  - Condition aggravated [Unknown]
  - Diaphragmatic paralysis [Unknown]
  - Asthenia [Unknown]
  - Critical illness [Unknown]
